FAERS Safety Report 4959682-8 (Version None)
Quarter: 2006Q1

REPORT INFORMATION
  Report Type: 
  Country: None (occurrence: None)
  Receive Date: 20060328
  Receipt Date: 20060313
  Transmission Date: 20060701
  Serious: Yes (Other)
  Sender: FDA-Public Use
  Company Number: 2006037029

PATIENT
  Age: 55 Year
  Sex: Male
  Weight: 81.6475 kg

DRUGS (6)
  1. ZYVOX [Suspect]
     Indication: INFECTION
     Dosage: INTRAVENOUS
     Route: 042
     Dates: start: 20051001
  2. ZYVOX [Suspect]
     Indication: INFECTION
     Dosage: 1200 MG (600 MG, 2 IN 1 D), ORAL
     Route: 048
  3. UNSPECIFIED PAIN MEDICATION (ANALGESICS) [Concomitant]
  4. PROCARDIA [Concomitant]
  5. ALLEGRA [Concomitant]
  6. LOMOTIL [Concomitant]

REACTIONS (9)
  - CATARACT OPERATION [None]
  - DIABETES MELLITUS [None]
  - DIARRHOEA [None]
  - DIZZINESS [None]
  - FALL [None]
  - HYPOAESTHESIA [None]
  - OPEN WOUND [None]
  - THERAPY NON-RESPONDER [None]
  - VISION BLURRED [None]
